FAERS Safety Report 9417473 (Version 1)
Quarter: 2013Q3

REPORT INFORMATION
  Report Type: Spontaneous
  Country: DE (occurrence: None)
  Receive Date: 20130719
  Receipt Date: 20130719
  Transmission Date: 20140515
  Serious: Yes (Other)
  Sender: FDA-Public Use
  Company Number: GER/GER/13/0031929

PATIENT
  Age: 69 Year
  Sex: Female
  Weight: 73 kg

DRUGS (3)
  1. CIPROFLOXACIN [Suspect]
     Indication: URINARY TRACT INFECTION
     Route: 048
  2. ALLOPURINOL [Suspect]
     Indication: HYPERURICAEMIA
     Route: 048
  3. SUTENT (SUNITINIB MALEATE) [Concomitant]

REACTIONS (4)
  - Skin exfoliation [None]
  - Oral disorder [None]
  - Blister [None]
  - Erythema [None]
